FAERS Safety Report 4834520-2 (Version None)
Quarter: 2005Q4

REPORT INFORMATION
  Report Type: 
  Country: None (occurrence: None)
  Receive Date: 20051122
  Receipt Date: 20050124
  Transmission Date: 20060501
  Serious: No
  Sender: FDA-Public Use
  Company Number: US-BRISTOL-MYERS SQUIBB COMPANY-12836102

PATIENT

DRUGS (1)
  1. PRAVACHOL [Suspect]

REACTIONS (2)
  - BURNING SENSATION [None]
  - PRURITUS [None]
